FAERS Safety Report 7740644-2 (Version None)
Quarter: 2011Q3

REPORT INFORMATION
  Report Type: 
  Country: None (occurrence: None)
  Receive Date: 20110909
  Receipt Date: 20110831
  Transmission Date: 20111222
  Serious: Yes (Hospitalization)
  Sender: FDA-Public Use
  Company Number: FR-MERCK-1109USA00440

PATIENT
  Age: 69 Year
  Sex: Male

DRUGS (15)
  1. CACIT [Concomitant]
     Route: 065
  2. ALEPSAL (CAFFEINE (+) PHENOBARBITAL) [Concomitant]
     Route: 065
  3. OXAZEPAM [Concomitant]
     Route: 065
  4. MOTILIUM [Concomitant]
     Route: 065
  5. FORLAX [Concomitant]
     Route: 065
  6. OXYCODONE HCL [Concomitant]
     Route: 065
  7. MIANSERIN HYDROCHLORIDE [Concomitant]
     Route: 065
  8. ASPIRIN [Concomitant]
     Route: 065
  9. SINEMET [Suspect]
     Route: 048
     Dates: start: 20110601
  10. OXYCONTIN [Concomitant]
     Route: 065
  11. ACETAMINOPHEN [Concomitant]
     Route: 065
  12. CRESTOR [Concomitant]
     Route: 065
  13. NEXIUM [Concomitant]
     Route: 065
  14. SINEMET [Suspect]
     Indication: PARKINSON'S DISEASE
     Route: 048
     Dates: start: 20110517, end: 20110601
  15. FOSAMAX [Concomitant]
     Route: 065

REACTIONS (1)
  - CONVULSION [None]
